FAERS Safety Report 23553868 (Version 2)
Quarter: 2024Q2

REPORT INFORMATION
  Report Type: Spontaneous
  Country: US (occurrence: US)
  Receive Date: 20240222
  Receipt Date: 20240417
  Transmission Date: 20240716
  Serious: Yes (Hospitalization, Other)
  Sender: FDA-Public Use
  Company Number: US-PFIZER INC-202400046446

PATIENT
  Age: 80 Year
  Sex: Male
  Weight: 104.31 kg

DRUGS (3)
  1. VYNDAMAX [Suspect]
     Active Substance: TAFAMIDIS
     Indication: Amyloidosis
     Dosage: 61MG CAPSULE AT NIGHT
     Route: 048
     Dates: start: 2023
  2. VYNDAMAX [Suspect]
     Active Substance: TAFAMIDIS
     Indication: Left ventricular hypertrophy
     Dosage: 61 MG, 1X/DAY
     Dates: start: 202308
  3. OXYCONTIN [Concomitant]
     Active Substance: OXYCODONE HYDROCHLORIDE
     Dosage: UNK
     Dates: start: 20240122

REACTIONS (2)
  - Therapeutic response unexpected [Recovered/Resolved]
  - Hip arthroplasty [Unknown]

NARRATIVE: CASE EVENT DATE: 20240101
